FAERS Safety Report 25699425 (Version 1)
Quarter: 2025Q3

REPORT INFORMATION
  Report Type: Spontaneous
  Country: EU (occurrence: EU)
  Receive Date: 20250819
  Receipt Date: 20250819
  Transmission Date: 20251020
  Serious: Yes (Other)
  Sender: RANBAXY
  Company Number: EU-SUN PHARMACEUTICAL INDUSTRIES LTD-2025RR-522088

PATIENT
  Age: 72 Year
  Sex: Female
  Weight: 87.8 kg

DRUGS (2)
  1. GEMCITABINE [Suspect]
     Active Substance: GEMCITABINE
     Indication: Ductal adenocarcinoma of pancreas
     Dosage: 2000 MILLIGRAM, 1/WEEK
     Route: 040
     Dates: start: 20230901, end: 20230908
  2. CAPECITABINE [Concomitant]
     Active Substance: CAPECITABINE
     Indication: Ductal adenocarcinoma of pancreas
     Dosage: 3-WEEK CYCLES, IN WHICH CAPECITABINE IS TAKEN FOR 14 CONSECUTIVE DAYS AND THEN RESTS (NOT TAKEN) FOR
     Route: 048
     Dates: start: 20230901, end: 20240224

REACTIONS (3)
  - Pyrexia [Recovered/Resolved]
  - Rash [Recovered/Resolved]
  - Pruritus [Recovered/Resolved]

NARRATIVE: CASE EVENT DATE: 20230903
